FAERS Safety Report 18390239 (Version 5)
Quarter: 2021Q3

REPORT INFORMATION
  Report Type: Spontaneous
  Country: US (occurrence: US)
  Receive Date: 20201016
  Receipt Date: 20210906
  Transmission Date: 20211014
  Serious: Yes (Hospitalization)
  Sender: FDA-Public Use
  Company Number: US-SAREPTA THERAPEUTICS INC.-SRP2020-000902

PATIENT
  Age: 17 Year
  Sex: Male
  Weight: 59.09 kg

DRUGS (13)
  1. EXONDYS 51 [Suspect]
     Active Substance: ETEPLIRSEN
     Dosage: 1800 MG (30 MG/KG), WEEKLY
     Route: 042
     Dates: start: 20161108
  2. DEFLAZACORT [Concomitant]
     Active Substance: DEFLAZACORT
     Indication: DUCHENNE MUSCULAR DYSTROPHY
     Dosage: 30 MILLIGRAM, QD ONLY ON WEEKENDS
     Route: 048
     Dates: start: 2020
  3. PREDNISONE. [Concomitant]
     Active Substance: PREDNISONE
     Indication: DUCHENNE MUSCULAR DYSTROPHY
     Dosage: UNK
  4. LISINOPRIL. [Concomitant]
     Active Substance: LISINOPRIL
     Dosage: 2.5 MILLIGRAM, QD
     Route: 048
     Dates: start: 20201017
  5. LISINOPRIL. [Concomitant]
     Active Substance: LISINOPRIL
     Indication: CARDIAC FAILURE
     Dosage: 10 MILLIGRAM, QD
     Route: 048
     Dates: end: 20201017
  6. LISINOPRIL. [Concomitant]
     Active Substance: LISINOPRIL
     Dosage: 10 MILLIGRAM, QD
     Route: 048
     Dates: start: 20180821
  7. COREG [Concomitant]
     Active Substance: CARVEDILOL
     Indication: CARDIAC FAILURE
     Dosage: 25 MILLIGRAM, BID
     Route: 048
     Dates: start: 20180821
  8. DEFLAZACORT [Concomitant]
     Active Substance: DEFLAZACORT
     Dosage: 42 MILLIGRAM, QD
     Route: 048
     Dates: start: 2015
  9. FLONASE ALLERGY RELIEF [Concomitant]
     Active Substance: FLUTICASONE PROPIONATE
     Indication: SEASONAL ALLERGY
     Dosage: 1 SPRAY NASAL, QD
     Route: 045
  10. EXONDYS 51 [Suspect]
     Active Substance: ETEPLIRSEN
     Indication: DUCHENNE MUSCULAR DYSTROPHY
     Dosage: 1750 MILLIGRAM, WEEKLY
     Route: 042
     Dates: start: 20190404
  11. PRINCIPEN [AMPICILLIN] [Concomitant]
     Indication: SKIN LACERATION
     Dosage: 500 MILLIGRAM, Q6H
     Route: 048
  12. DEFLAZACORT [Concomitant]
     Active Substance: DEFLAZACORT
     Dosage: 36 MILLIGRAM, QD
     Route: 048
     Dates: start: 201902
  13. VITAMIN D3 [Concomitant]
     Active Substance: CHOLECALCIFEROL
     Indication: OSTEOPOROSIS
     Dosage: 400 INTERNATIONAL UNIT, QD
     Route: 048

REACTIONS (13)
  - Cardiac failure acute [Recovered/Resolved]
  - Glucocorticoid deficiency [Recovered/Resolved]
  - Fatigue [Recovered/Resolved]
  - Osteoporosis [Unknown]
  - Back pain [Recovered/Resolved]
  - Decreased activity [Recovered/Resolved]
  - Decreased appetite [Recovered/Resolved]
  - Arthralgia [Recovered/Resolved]
  - Skin laceration [Recovered/Resolved]
  - Sleep apnoea syndrome [Unknown]
  - Impaired healing [Recovered/Resolved]
  - Cardiomyopathy [Recovered/Resolved]
  - Peripheral swelling [Recovered/Resolved]

NARRATIVE: CASE EVENT DATE: 2018
